FAERS Safety Report 10983696 (Version 1)
Quarter: 2015Q2

REPORT INFORMATION
  Report Type: Report from Study
  Country: FR (occurrence: None)
  Receive Date: 20150401
  Receipt Date: 20150401
  Transmission Date: 20150821
  Serious: No
  Sender: FDA-Public Use
  Company Number: FR2015GSK039498

PATIENT
  Age: 30 Year
  Sex: Female
  Weight: 54 kg

DRUGS (3)
  1. MARAVIROC [Suspect]
     Active Substance: MARAVIROC
  2. VALGANCICLOVIR [Suspect]
     Active Substance: VALGANCICLOVIR
     Dates: start: 20141006
  3. ATOVAQUONE. [Suspect]
     Active Substance: ATOVAQUONE
     Dates: start: 20141004

REACTIONS (1)
  - Hepatitis [None]

NARRATIVE: CASE EVENT DATE: 20141014
